FAERS Safety Report 7572904-2 (Version None)
Quarter: 2011Q2

REPORT INFORMATION
  Report Type: 
  Country: None (occurrence: None)
  Receive Date: 20110627
  Receipt Date: 20110617
  Transmission Date: 20111010
  Serious: Yes (Other)
  Sender: FDA-Public Use
  Company Number: CA-ELI_LILLY_AND_COMPANY-CA201106005111

PATIENT
  Sex: Female

DRUGS (5)
  1. EFFEXOR [Concomitant]
  2. CLOZAPINE [Concomitant]
  3. ZYPREXA [Suspect]
     Dosage: 10 MG, QD
  4. ZYPREXA [Suspect]
     Dosage: 30 MG, QD
  5. ZYPREXA [Suspect]
     Indication: SCHIZOPHRENIA, PARANOID TYPE
     Dosage: 5 MG, QD
     Dates: start: 19980201, end: 20020601

REACTIONS (9)
  - HYPERGLYCAEMIA [None]
  - DIZZINESS [None]
  - WEIGHT INCREASED [None]
  - DIABETES MELLITUS [None]
  - BLOOD TRIGLYCERIDES INCREASED [None]
  - BLOOD PROLACTIN INCREASED [None]
  - TOOTH LOSS [None]
  - BLOOD CHOLESTEROL INCREASED [None]
  - OVERDOSE [None]
